FAERS Safety Report 5133434-0 (Version None)
Quarter: 2006Q4

REPORT INFORMATION
  Report Type: 
  Country: None (occurrence: None)
  Receive Date: 20061024
  Receipt Date: 20060302
  Transmission Date: 20070319
  Serious: Yes (Other)
  Sender: FDA-Public Use
  Company Number: US-ELI_LILLY_AND_COMPANY-US200605004489

PATIENT
  Age: 48 Year
  Sex: Male
  Weight: 72.562 kg

DRUGS (2)
  1. ZYPREXA [Suspect]
     Indication: DEPRESSION
     Dosage: 10 MG, UNK
     Dates: end: 20050801
  2. ZOLOFT [Concomitant]
     Dates: start: 19951201, end: 20040601

REACTIONS (4)
  - HEPATITIS VIRAL [None]
  - HYPERGLYCAEMIA [None]
  - HYPERGLYCAEMIC HYPEROSMOLAR NONKETOTIC SYNDROME [None]
  - HYPERTENSION [None]
